FAERS Safety Report 15657029 (Version 1)
Quarter: 2018Q4

REPORT INFORMATION
  Report Type: Report from Study
  Country: US (occurrence: US)
  Receive Date: 20181126
  Receipt Date: 20181126
  Transmission Date: 20190205
  Serious: Yes (Other)
  Sender: FDA-Public Use
  Company Number: US-ASTELLAS-2017US019973

PATIENT
  Age: 73 Year
  Sex: Female
  Weight: 53 kg

DRUGS (13)
  1. ERLOTINIB [Suspect]
     Active Substance: ERLOTINIB
     Route: 048
     Dates: start: 20180710
  2. ACETAMINOPHEN/HYDROCODONE [Suspect]
     Active Substance: ACETAMINOPHEN\HYDROCODONE
     Indication: PAIN
     Dosage: 5-325MG EVERY FOUR HOURS, OTHER
     Route: 048
     Dates: start: 2016
  3. LORAZEPAM. [Concomitant]
     Active Substance: LORAZEPAM
     Indication: ANXIETY
     Route: 048
     Dates: start: 1978
  4. NEXIUM [Concomitant]
     Active Substance: ESOMEPRAZOLE MAGNESIUM
     Indication: DYSPEPSIA
     Dosage: 22.3 MG, ONCE DAILY
     Route: 048
     Dates: start: 2014
  5. ERLOTINIB [Suspect]
     Active Substance: ERLOTINIB
     Indication: LUNG NEOPLASM MALIGNANT
     Route: 048
     Dates: start: 20161123
  6. NEXIUM [Concomitant]
     Active Substance: ESOMEPRAZOLE MAGNESIUM
     Indication: FLATULENCE
  7. ERLOTINIB [Suspect]
     Active Substance: ERLOTINIB
     Indication: NON-SMALL CELL LUNG CANCER
     Route: 048
  8. METOPROLOL TARTRATE. [Concomitant]
     Active Substance: METOPROLOL TARTRATE
     Indication: BLOOD PRESSURE MEASUREMENT
     Route: 048
     Dates: start: 1978
  9. LOVASTATIN. [Concomitant]
     Active Substance: LOVASTATIN
     Indication: BLOOD CHOLESTEROL
     Route: 048
     Dates: start: 1980
  10. ASPIRIN. [Concomitant]
     Active Substance: ASPIRIN
     Indication: PRODUCT USED FOR UNKNOWN INDICATION
     Route: 048
     Dates: start: 1980
  11. APAP [Concomitant]
     Active Substance: ACETAMINOPHEN
     Indication: PRODUCT USED FOR UNKNOWN INDICATION
     Dosage: UNK, UNKNOWN FREQ.
     Route: 065
  12. ERLOTINIB [Suspect]
     Active Substance: ERLOTINIB
     Indication: BRONCHIAL CARCINOMA
     Route: 048
     Dates: start: 20161013, end: 20161120
  13. LISINOPRIL. [Concomitant]
     Active Substance: LISINOPRIL
     Indication: BLOOD PRESSURE MEASUREMENT
     Route: 048

REACTIONS (32)
  - Nasal ulcer [Not Recovered/Not Resolved]
  - Alopecia [Not Recovered/Not Resolved]
  - Skin ulcer [Not Recovered/Not Resolved]
  - Pruritus [Not Recovered/Not Resolved]
  - Pruritus [Recovered/Resolved with Sequelae]
  - Onychoclasis [Not Recovered/Not Resolved]
  - Somnolence [Not Recovered/Not Resolved]
  - Rash generalised [Recovered/Resolved with Sequelae]
  - Stomatitis [Recovering/Resolving]
  - Rash [Recovered/Resolved with Sequelae]
  - Haemorrhoidal haemorrhage [Recovered/Resolved with Sequelae]
  - Hot flush [Not Recovered/Not Resolved]
  - Dysgeusia [Not Recovered/Not Resolved]
  - Incontinence [Recovered/Resolved with Sequelae]
  - Neck pain [Not Recovered/Not Resolved]
  - Sensory disturbance [Unknown]
  - Feeling hot [Unknown]
  - Dry skin [Recovered/Resolved with Sequelae]
  - Eczema [Recovering/Resolving]
  - Ill-defined disorder [Recovered/Resolved with Sequelae]
  - Chest pain [Not Recovered/Not Resolved]
  - Rhinorrhoea [Not Recovered/Not Resolved]
  - Alopecia [Not Recovered/Not Resolved]
  - Infrequent bowel movements [Recovered/Resolved with Sequelae]
  - Nasopharyngitis [Not Recovered/Not Resolved]
  - Trichorrhexis [Not Recovered/Not Resolved]
  - Skin warm [Recovered/Resolved with Sequelae]
  - Abdominal pain upper [Recovered/Resolved with Sequelae]
  - Hair texture abnormal [Not Recovered/Not Resolved]
  - Food intolerance [Unknown]
  - Rash [Not Recovered/Not Resolved]
  - Diarrhoea [Recovered/Resolved with Sequelae]

NARRATIVE: CASE EVENT DATE: 2016
